FAERS Safety Report 5473201-1 (Version None)
Quarter: 2007Q4

REPORT INFORMATION
  Report Type: 
  Country: None (occurrence: None)
  Receive Date: 20071001
  Receipt Date: 20070926
  Transmission Date: 20080405
  Serious: Yes (Life-Threatening)
  Sender: FDA-Public Use
  Company Number: GB-ASTRAZENECA-2007GB02004

PATIENT
  Age: 67 Year
  Sex: Male

DRUGS (5)
  1. ROSUVASTATIN [Suspect]
     Indication: BLOOD CHOLESTEROL INCREASED
     Route: 048
     Dates: end: 20070801
  2. ASPIRIN [Concomitant]
     Indication: MYOCARDIAL ISCHAEMIA
  3. CANDESARTAN CILEXETIL [Concomitant]
     Indication: MYOCARDIAL ISCHAEMIA
  4. CLOPIDOGREL [Concomitant]
     Indication: MYOCARDIAL ISCHAEMIA
  5. METOPROLOL [Concomitant]
     Indication: MYOCARDIAL ISCHAEMIA

REACTIONS (2)
  - PANCREATIC INSUFFICIENCY [None]
  - PANCREATITIS ACUTE [None]
